FAERS Safety Report 10155783 (Version 1)
Quarter: 2014Q2

REPORT INFORMATION
  Report Type: Spontaneous
  Country: GR (occurrence: GR)
  Receive Date: 20140506
  Receipt Date: 20140506
  Transmission Date: 20141212
  Serious: Yes (Hospitalization)
  Sender: FDA-Public Use
  Company Number: GR-BRISTOL-MYERS SQUIBB COMPANY-20671319

PATIENT
  Age: 72 Year
  Sex: Male

DRUGS (2)
  1. BARACLUDE TABS 0.5 MG [Suspect]
     Route: 048
     Dates: start: 201401, end: 20140404
  2. HUMIRA [Concomitant]
     Dates: end: 20140404

REACTIONS (1)
  - Rhabdomyolysis [Unknown]
